FAERS Safety Report 21684507 (Version 3)
Quarter: 2022Q4

REPORT INFORMATION
  Report Type: Spontaneous
  Country: ES (occurrence: ES)
  Receive Date: 20221205
  Receipt Date: 20221222
  Transmission Date: 20230112
  Serious: No
  Sender: FDA-Public Use
  Company Number: ES-SUN PHARMACEUTICAL INDUSTRIES LTD-2022R1-365962

PATIENT
  Age: 33 Year
  Sex: Female

DRUGS (3)
  1. MISOPROSTOL [Suspect]
     Active Substance: MISOPROSTOL
     Indication: Abortion induced
     Dosage: 400 UG
     Route: 067
  2. MISOPROSTOL [Suspect]
     Active Substance: MISOPROSTOL
     Dosage: 400 UG
     Route: 048
  3. MIFEPRISTONE [Suspect]
     Active Substance: MIFEPRISTONE
     Indication: Abortion induced
     Dosage: 200 MG

REACTIONS (2)
  - Off label use [Unknown]
  - Off label use [Unknown]
